FAERS Safety Report 8278790 (Version 2)
Quarter: 2015Q1

REPORT INFORMATION
  Report Type: Report from Study
  Country: US (occurrence: US)
  Receive Date: 20111207
  Receipt Date: 20150209
  Transmission Date: 20150721
  Serious: Yes (Other)
  Sender: FDA-Public Use
  Company Number: US-ROCHE-1010963

PATIENT
  Age: 86 Year
  Sex: Female
  Weight: 91.71 kg

DRUGS (4)
  1. MEVACOR [Concomitant]
     Active Substance: LOVASTATIN
     Route: 048
  2. HCTZ [Concomitant]
     Active Substance: HYDROCHLOROTHIAZIDE
     Indication: BLOOD PRESSURE
     Dosage: 50/12.5MG
     Route: 048
  3. ZELBORAF [Suspect]
     Active Substance: VEMURAFENIB
     Indication: MALIGNANT MELANOMA
     Route: 048
     Dates: start: 20111020, end: 20111030
  4. CARDIZEM [Concomitant]
     Active Substance: DILTIAZEM HYDROCHLORIDE
     Route: 048

REACTIONS (13)
  - Arthralgia [Unknown]
  - Dysphonia [Unknown]
  - Fatigue [Recovered/Resolved]
  - Chest pain [Recovered/Resolved]
  - Decreased appetite [Unknown]
  - Dyspnoea [Recovered/Resolved]
  - Urticaria [Recovered/Resolved]
  - Chills [Recovered/Resolved]
  - Nausea [Recovered/Resolved]
  - Rash macular [Recovered/Resolved]
  - Skin papilloma [Unknown]
  - Pruritus [Unknown]
  - Urticaria [Unknown]

NARRATIVE: CASE EVENT DATE: 20111031
